FAERS Safety Report 18012812 (Version 5)
Quarter: 2022Q3

REPORT INFORMATION
  Report Type: Spontaneous
  Country: JP (occurrence: JP)
  Receive Date: 20200713
  Receipt Date: 20220713
  Transmission Date: 20221026
  Serious: Yes (Hospitalization, Other)
  Sender: FDA-Public Use
  Company Number: JP-GSKNCCC-CASE-00970940_AE-30382

PATIENT

DRUGS (4)
  1. LAMICTAL [Suspect]
     Active Substance: LAMOTRIGINE
     Dosage: 12500 MG, SINGLE
     Route: 048
     Dates: start: 20200623, end: 20200623
  2. LORAZEPAM [Suspect]
     Active Substance: LORAZEPAM
     Dosage: 4 MG, SINGLE
     Route: 048
     Dates: start: 20200623, end: 20200623
  3. QUETIAPINE FUMARATE [Suspect]
     Active Substance: QUETIAPINE FUMARATE
     Dosage: 200 MG, SINGLE
     Route: 048
     Dates: start: 20200623, end: 20200623
  4. BROTIZOLAM [Suspect]
     Active Substance: BROTIZOLAM
     Dosage: 7 MG, SINGLE
     Route: 048
     Dates: start: 20200623, end: 20200623

REACTIONS (9)
  - Seizure [Recovered/Resolved]
  - Loss of consciousness [Recovered/Resolved]
  - Rhabdomyolysis [Recovered/Resolved]
  - Blood creatine phosphokinase increased [Recovered/Resolved]
  - Haematuria [Unknown]
  - Altered state of consciousness [Recovered/Resolved]
  - Restlessness [Recovered/Resolved]
  - Suicide attempt [Unknown]
  - Intentional overdose [Unknown]

NARRATIVE: CASE EVENT DATE: 20200623
